FAERS Safety Report 4658841-1 (Version None)
Quarter: 2005Q2

REPORT INFORMATION
  Report Type: 
  Country: None (occurrence: None)
  Receive Date: 20050511
  Receipt Date: 20050113
  Transmission Date: 20051028
  Serious: Yes (Other)
  Sender: FDA-Public Use
  Company Number: US-MERCK-0501USA01704

PATIENT

DRUGS (1)
  1. CUPRIMINE [Suspect]
     Route: 048

REACTIONS (1)
  - ADVERSE EVENT [None]
